FAERS Safety Report 12505707 (Version 1)
Quarter: 2016Q2

REPORT INFORMATION
  Report Type: Spontaneous
  Country: US (occurrence: US)
  Receive Date: 20160628
  Receipt Date: 20160628
  Transmission Date: 20160815
  Serious: No
  Sender: FDA-Public Use
  Company Number: US-MEDA-2016060073

PATIENT
  Age: 52 Year
  Sex: Female

DRUGS (1)
  1. ELESTRIN [Suspect]
     Active Substance: ESTRADIOL
     Dates: end: 201606

REACTIONS (3)
  - Insomnia [Not Recovered/Not Resolved]
  - Hyperhidrosis [Not Recovered/Not Resolved]
  - Nervousness [Not Recovered/Not Resolved]

NARRATIVE: CASE EVENT DATE: 201606
